FAERS Safety Report 11823024 (Version 1)
Quarter: 2015Q4

REPORT INFORMATION
  Report Type: Report from Study
  Country: JP (occurrence: JP)
  Receive Date: 20151210
  Receipt Date: 20151210
  Transmission Date: 20160305
  Serious: Yes (Other)
  Sender: FDA-Public Use
  Company Number: JP-ROCHE-1589295

PATIENT
  Age: 85 Year
  Sex: Female
  Weight: 53 kg

DRUGS (4)
  1. TRASTUZUMAB EMTANSINE [Suspect]
     Active Substance: ADO-TRASTUZUMAB EMTANSINE
     Route: 041
     Dates: start: 20150519, end: 20150519
  2. TRASTUZUMAB EMTANSINE [Suspect]
     Active Substance: ADO-TRASTUZUMAB EMTANSINE
     Indication: BREAST CANCER
     Route: 041
     Dates: start: 20150317, end: 20150317
  3. TRASTUZUMAB EMTANSINE [Suspect]
     Active Substance: ADO-TRASTUZUMAB EMTANSINE
     Route: 041
     Dates: start: 20150428, end: 20150428
  4. TRASTUZUMAB EMTANSINE [Suspect]
     Active Substance: ADO-TRASTUZUMAB EMTANSINE
     Route: 041
     Dates: start: 20150407, end: 20150407

REACTIONS (3)
  - C-reactive protein increased [Recovered/Resolved]
  - Cardiac failure [Recovering/Resolving]
  - Pyrexia [Recovered/Resolved]

NARRATIVE: CASE EVENT DATE: 20150528
